FAERS Safety Report 10376284 (Version 2)
Quarter: 2014Q4

REPORT INFORMATION
  Report Type: Spontaneous
  Country: DK (occurrence: DK)
  Receive Date: 20140811
  Receipt Date: 20141222
  Transmission Date: 20150528
  Serious: Yes (Hospitalization)
  Sender: FDA-Public Use
  Company Number: DK-PFIZER INC-2014218195

PATIENT
  Age: 70 Year
  Sex: Male

DRUGS (10)
  1. FLUDARA [Suspect]
     Active Substance: FLUDARABINE PHOSPHATE
     Indication: CHRONIC LYMPHOCYTIC LEUKAEMIA
     Dosage: 60 MG, MONTHLY (STRENGTH 10 MG, 2 SERIES WERE GIVEN),
     Route: 048
     Dates: start: 20100930, end: 20101031
  2. ONCOVIN [Suspect]
     Active Substance: VINCRISTINE SULFATE
     Indication: DIFFUSE LARGE B-CELL LYMPHOMA
     Dosage: EITHER 1 OR 2 MG DURING 8 SERIES, EVERY 3 WEEKS, IN TOTAL 11 MG
     Route: 042
     Dates: start: 20130424, end: 20130918
  3. ADRIAMYCIN [Suspect]
     Active Substance: DOXORUBICIN HYDROCHLORIDE
     Indication: DIFFUSE LARGE B-CELL LYMPHOMA
     Dosage: 110 MG (STRENGHT 2 MG/ML), EVERY 3 WEEKS (6 SERIES WERE GIVEN)
     Route: 042
     Dates: start: 20130424, end: 20130807
  4. MABTHERA [Suspect]
     Active Substance: RITUXIMAB
     Dosage: 800 MG, MONTHLY (6 SERIES WERE GIVEN)
     Route: 042
     Dates: start: 20110701, end: 20111123
  5. MABTHERA [Suspect]
     Active Substance: RITUXIMAB
     Dosage: 800 MG, EVERY 3 WEEKS (8 SERIES WERE IVEN)
     Route: 042
     Dates: start: 20130424, end: 20130918
  6. SENDOXAN [Suspect]
     Active Substance: CYCLOPHOSPHAMIDE
     Indication: CHRONIC LYMPHOCYTIC LEUKAEMIA
     Dosage: 500 MG, MONTHLY (STRENGTH 50 MG, 7 SERIES GIVEN)
     Route: 048
     Dates: start: 20100819, end: 20110203
  7. MABTHERA [Suspect]
     Active Substance: RITUXIMAB
     Indication: CHRONIC LYMPHOCYTIC LEUKAEMIA
     Dosage: 800 MG, MONTHLY (7 SERIES WERE GIVEN)
     Route: 042
     Dates: start: 20100819, end: 20110203
  8. LEVACT [Suspect]
     Active Substance: BENDAMUSTINE HYDROCHLORIDE
     Indication: CHRONIC LYMPHOCYTIC LEUKAEMIA
     Dosage: 380 MG (STRENGTH: 2.5 MG/ML, 6 SERIES GIVEN)
     Route: 042
     Dates: start: 20110701, end: 20111123
  9. CAELYX [Suspect]
     Active Substance: DOXORUBICIN HYDROCHLORIDE
     Indication: CHRONIC LYMPHOCYTIC LEUKAEMIA
     Dosage: 90 MG (STRENGTH: 2 MG/ML), EVERY 3 WEEKS (2 SERIES GIVEN)
     Route: 042
     Dates: start: 20130828, end: 20130918
  10. PREDNISOLONE. [Concomitant]
     Active Substance: PREDNISOLONE
     Indication: DIFFUSE LARGE B-CELL LYMPHOMA
     Dosage: 50 MG, EVERY 3 WEEKS
     Route: 048

REACTIONS (7)
  - Pleural effusion [Recovered/Resolved]
  - Cardiomyopathy [Not Recovered/Not Resolved]
  - Respiratory failure [Recovered/Resolved with Sequelae]
  - Atrial fibrillation [Recovered/Resolved]
  - Cardiac failure [Not Recovered/Not Resolved]
  - Dyspnoea [Unknown]
  - Lung infiltration [Recovered/Resolved]

NARRATIVE: CASE EVENT DATE: 201207
